FAERS Safety Report 10042225 (Version 1)
Quarter: 2014Q1

REPORT INFORMATION
  Report Type: Spontaneous
  Country: FR (occurrence: FR)
  Receive Date: 20140327
  Receipt Date: 20140327
  Transmission Date: 20141002
  Serious: Yes (Death, Hospitalization)
  Sender: FDA-Public Use
  Company Number: FR-GLAXOSMITHKLINE-B0978770A

PATIENT
  Age: 90 Year
  Sex: Female

DRUGS (2)
  1. ARIXTRA [Suspect]
     Indication: EMBOLISM VENOUS
     Dosage: 7.5MG PER DAY
     Route: 058
     Dates: end: 20120127
  2. KARDEGIC [Suspect]
     Indication: EMBOLISM VENOUS
     Dosage: 160MG PER DAY
     Route: 048
     Dates: end: 20120127

REACTIONS (6)
  - Haematoma [Fatal]
  - Cerebrovascular accident [Fatal]
  - Respiratory failure [Unknown]
  - Facial asymmetry [Unknown]
  - Altered state of consciousness [Unknown]
  - Incorrect drug administration duration [Unknown]
